FAERS Safety Report 7535208-X (Version None)
Quarter: 2011Q2

REPORT INFORMATION
  Report Type: 
  Country: None (occurrence: None)
  Receive Date: 20110609
  Receipt Date: 20071127
  Transmission Date: 20111010
  Serious: Yes (Hospitalization)
  Sender: FDA-Public Use
  Company Number: PHHO2007US17152

PATIENT
  Sex: Male
  Weight: 96 kg

DRUGS (1)
  1. MYFORTIC [Suspect]
     Indication: RENAL TRANSPLANT
     Dosage: 1440 MG PER DAY
     Route: 048
     Dates: start: 20070730, end: 20070821

REACTIONS (11)
  - DIABETIC GASTROPARESIS [None]
  - NAUSEA [None]
  - HYPERTENSION [None]
  - ILEUS [None]
  - ABDOMINAL DISCOMFORT [None]
  - TACHYCARDIA [None]
  - SEPSIS [None]
  - VOMITING [None]
  - DEHYDRATION [None]
  - LOSS OF CONSCIOUSNESS [None]
  - IMPAIRED GASTRIC EMPTYING [None]
